FAERS Safety Report 8154031-9 (Version None)
Quarter: 2012Q1

REPORT INFORMATION
  Report Type: 
  Country: None (occurrence: None)
  Receive Date: 20120221
  Receipt Date: 20120221
  Transmission Date: 20120608
  Serious: No
  Sender: FDA-Public Use
  Company Number: None

PATIENT
  Age: 55 Year
  Sex: Female
  Weight: 57.152 kg

DRUGS (1)
  1. EXCEDRIN PM TABLETS [Suspect]
     Indication: HEADACHE
     Dosage: 2 TABLETS
     Route: 048

REACTIONS (8)
  - FALL [None]
  - NAUSEA [None]
  - TABLET PHYSICAL ISSUE [None]
  - DYSSTASIA [None]
  - LOSS OF CONSCIOUSNESS [None]
  - PRODUCT COMMINGLING [None]
  - PRODUCT QUALITY ISSUE [None]
  - VERTIGO [None]
